FAERS Safety Report 13802309 (Version 4)
Quarter: 2018Q1

REPORT INFORMATION
  Report Type: Spontaneous
  Country: US (occurrence: US)
  Receive Date: 20170728
  Receipt Date: 20180130
  Transmission Date: 20180508
  Serious: No
  Sender: FDA-Public Use
  Company Number: US-PFIZER INC-2017328467

PATIENT
  Age: 55 Year
  Sex: Female
  Weight: 57.15 kg

DRUGS (6)
  1. ESTRING [Suspect]
     Active Substance: ESTRADIOL
     Indication: VULVOVAGINAL PAIN
  2. WILD YAM [Concomitant]
     Dosage: UNK UNK, DAILY (1 OF 2 CAPS DAILY 400MG EACH) (PERIODICALLY LAST 6-8 WKS)
  3. ESTRING [Suspect]
     Active Substance: ESTRADIOL
     Indication: DYSPAREUNIA
     Dosage: 2 MG, EVERY 3 MONTHS
     Route: 067
     Dates: start: 2017, end: 201801
  4. ESTRING [Suspect]
     Active Substance: ESTRADIOL
     Indication: URINARY INCONTINENCE
  5. PROGESTERONE. [Concomitant]
     Active Substance: PROGESTERONE
     Dosage: UNK
  6. ESTRING [Suspect]
     Active Substance: ESTRADIOL
     Indication: ATROPHIC VULVOVAGINITIS

REACTIONS (9)
  - Drug effect decreased [Not Recovered/Not Resolved]
  - Tenderness [Not Recovered/Not Resolved]
  - Feeling abnormal [Unknown]
  - Vulvovaginal mycotic infection [Recovering/Resolving]
  - Bacterial infection [Recovering/Resolving]
  - Abdominal distension [Unknown]
  - Incorrect dose administered [Unknown]
  - Fluid retention [Unknown]
  - Urethral pain [Recovered/Resolved]

NARRATIVE: CASE EVENT DATE: 201707
